FAERS Safety Report 23251031 (Version 1)
Quarter: 2023Q4

REPORT INFORMATION
  Report Type: Report from Study
  Country: CA (occurrence: CA)
  Receive Date: 20231201
  Receipt Date: 20231201
  Transmission Date: 20240110
  Serious: Yes (Other)
  Sender: FDA-Public Use
  Company Number: CA-OTSUKA-2022_055104

PATIENT
  Age: 35 Year
  Sex: Male

DRUGS (2)
  1. TOLVAPTAN [Suspect]
     Active Substance: TOLVAPTAN
     Indication: Congenital cystic kidney disease
     Dosage: 60 MG
     Route: 048
     Dates: start: 20221008
  2. TOLVAPTAN [Suspect]
     Active Substance: TOLVAPTAN
     Dosage: RESTARTED DOSE
     Route: 048

REACTIONS (5)
  - Pulmonary embolism [Recovered/Resolved]
  - Pulmonary embolism [Unknown]
  - Gastrointestinal viral infection [Unknown]
  - Viral infection [Recovering/Resolving]
  - Alanine aminotransferase decreased [Unknown]

NARRATIVE: CASE EVENT DATE: 20230724
